FAERS Safety Report 7042744-1 (Version None)
Quarter: 2010Q4

REPORT INFORMATION
  Report Type: 
  Country: None (occurrence: None)
  Receive Date: 20101013
  Receipt Date: 20091009
  Transmission Date: 20110411
  Serious: No
  Sender: FDA-Public Use
  Company Number: US-ASTRAZENECA-2009SE19163

PATIENT
  Age: 50 Year
  Sex: Female

DRUGS (1)
  1. SYMBICORT [Suspect]
     Dosage: 1 PUFF
     Route: 055
     Dates: start: 20090101, end: 20090101

REACTIONS (2)
  - DRUG INEFFECTIVE [None]
  - MALAISE [None]
